FAERS Safety Report 8524171-0 (Version None)
Quarter: 2012Q3

REPORT INFORMATION
  Report Type: 
  Country: None (occurrence: None)
  Receive Date: 20120716
  Receipt Date: 20120716
  Transmission Date: 20120928
  Serious: Yes (Life-Threatening, Hospitalization)
  Sender: FDA-Public Use
  Company Number: None

PATIENT
  Age: 45 Year
  Sex: Female
  Weight: 79.3795 kg

DRUGS (1)
  1. TRILEPTAL [Suspect]
     Indication: AFFECTIVE DISORDER
     Dosage: 300MG 4X PER DAY PO
     Route: 048
     Dates: start: 20120601, end: 20120703

REACTIONS (18)
  - MIGRAINE [None]
  - FEELING ABNORMAL [None]
  - AGEUSIA [None]
  - NAUSEA [None]
  - MEMORY IMPAIRMENT [None]
  - DRUG WITHDRAWAL SYNDROME [None]
  - PAIN [None]
  - VISION BLURRED [None]
  - BLOOD SODIUM DECREASED [None]
  - DIARRHOEA [None]
  - VOMITING [None]
  - SEDATION [None]
  - ABDOMINAL PAIN [None]
  - INFLUENZA [None]
  - RETCHING [None]
  - COUGH [None]
  - BLOOD ELECTROLYTES ABNORMAL [None]
  - HYPOAESTHESIA [None]
